FAERS Safety Report 18575496 (Version 12)
Quarter: 2021Q1

REPORT INFORMATION
  Report Type: Spontaneous
  Country: US (occurrence: US)
  Receive Date: 20201203
  Receipt Date: 20210216
  Transmission Date: 20210419
  Serious: Yes (Hospitalization, Other)
  Sender: FDA-Public Use
  Company Number: US-CELGENEUS-USA-20201107642

PATIENT
  Sex: Male

DRUGS (1)
  1. INREBIC [Suspect]
     Active Substance: FEDRATINIB HYDROCHLORIDE
     Indication: MYELOFIBROSIS
     Dosage: 400 MILLIGRAM
     Route: 048
     Dates: start: 20201007

REACTIONS (7)
  - Fall [Unknown]
  - Platelet count decreased [Unknown]
  - Malaise [Unknown]
  - Skull fracture [Unknown]
  - Subdural haematoma [Unknown]
  - Haemoglobin decreased [Unknown]
  - Leukaemia [Unknown]

NARRATIVE: CASE EVENT DATE: 2020
